FAERS Safety Report 11775166 (Version 1)
Quarter: 2015Q4

REPORT INFORMATION
  Report Type: Spontaneous
  Country: SI (occurrence: SI)
  Receive Date: 20151124
  Receipt Date: 20151124
  Transmission Date: 20160304
  Serious: Yes (Hospitalization)
  Sender: FDA-Public Use
  Company Number: SI-AMGEN-SVNSP2015122908

PATIENT
  Age: 73 Year
  Sex: Male

DRUGS (2)
  1. DEXA                               /00016001/ [Concomitant]
     Active Substance: DEXAMETHASONE
     Dosage: 40 MG, UNK
     Route: 042
  2. NPLATE [Suspect]
     Active Substance: ROMIPLOSTIM
     Indication: IMMUNE THROMBOCYTOPENIC PURPURA
     Dosage: 2 MUG/KG, Q4WK
     Route: 065
     Dates: start: 20150727

REACTIONS (4)
  - Platelet count increased [Recovered/Resolved]
  - Prostatomegaly [Unknown]
  - Contusion [Unknown]
  - Platelet count decreased [Unknown]
